FAERS Safety Report 12898210 (Version 5)
Quarter: 2020Q3

REPORT INFORMATION
  Report Type: Report from Study
  Country: DE (occurrence: DE)
  Receive Date: 20161031
  Receipt Date: 20161216
  Transmission Date: 20201104
  Serious: Yes (Hospitalization)
  Sender: FDA-Public Use
  Company Number: DE-JNJFOC-20161019357

PATIENT
  Age: 44 Year
  Sex: Female
  Weight: 66.6 kg

DRUGS (12)
  1. PREDNISOLONE. [Concomitant]
     Active Substance: PREDNISOLONE
     Route: 048
  2. AZATHIOPRIN [Concomitant]
     Active Substance: AZATHIOPRINE
     Route: 048
     Dates: start: 20131205
  3. USTEKINUMAB [Suspect]
     Active Substance: USTEKINUMAB
     Route: 058
  4. USTEKINUMAB [Suspect]
     Active Substance: USTEKINUMAB
     Indication: CROHN^S DISEASE
     Dosage: AT 10:55 HRS
     Route: 058
     Dates: start: 20121005
  5. TRIGOA [Concomitant]
     Active Substance: ETHINYL ESTRADIOL\LEVONORGESTREL
     Indication: CONTRACEPTION
     Route: 048
     Dates: start: 1995
  6. VITAMINA B12 [Concomitant]
     Indication: NUTRITIONAL SUPPLEMENTATION
     Route: 058
     Dates: start: 20130313
  7. PANTOPRAZOL [Concomitant]
     Active Substance: PANTOPRAZOLE SODIUM
     Route: 048
     Dates: start: 20140327
  8. VIGANTOLETTEN [Concomitant]
     Active Substance: CHOLECALCIFEROL
     Route: 048
  9. COTRIM FORTE [Concomitant]
     Active Substance: SULFAMETHOXAZOLE\TRIMETHOPRIM
     Route: 048
     Dates: start: 20141213
  10. CALCIUM VERLA [Concomitant]
     Route: 048
  11. COLIFOAM [Concomitant]
     Active Substance: HYDROCORTISONE
     Indication: CROHN^S DISEASE
     Route: 054
     Dates: start: 20140710
  12. RAMIPRIL. [Concomitant]
     Active Substance: RAMIPRIL
     Indication: ANGIOTENSIN CONVERTING ENZYME
     Route: 048
     Dates: start: 20130725

REACTIONS (2)
  - Paraesthesia [Recovered/Resolved]
  - Parainfluenzae virus infection [Recovered/Resolved]

NARRATIVE: CASE EVENT DATE: 20160925
